FAERS Safety Report 9331549 (Version 2)
Quarter: 2013Q3

REPORT INFORMATION
  Report Type: Spontaneous
  Country: US (occurrence: US)
  Receive Date: 20130605
  Receipt Date: 20130715
  Transmission Date: 20140515
  Serious: No
  Sender: FDA-Public Use
  Company Number: US-PFIZER INC-2013167210

PATIENT
  Age: 71 Year
  Sex: Female
  Weight: 54.65 kg

DRUGS (4)
  1. SUTENT [Suspect]
     Indication: RENAL CANCER
     Dosage: 50 MG, CYCLIC QD (4 WEEKS ON AND 2 WEEKS OFF)
     Dates: start: 20130312
  2. SUTENT [Suspect]
     Indication: METASTASES TO BONE
  3. AMLODIPINE [Concomitant]
     Indication: HYPERTENSION
     Dosage: 2.5 MG, UNK
  4. TRAMADOL [Concomitant]
     Indication: BACK PAIN
     Dosage: UNK

REACTIONS (3)
  - Palmar-plantar erythrodysaesthesia syndrome [Unknown]
  - Blister [Recovering/Resolving]
  - Skin exfoliation [Recovering/Resolving]
